FAERS Safety Report 6412205-9 (Version None)
Quarter: 2009Q4

REPORT INFORMATION
  Report Type: 
  Country: None (occurrence: None)
  Receive Date: 20091023
  Receipt Date: 20091016
  Transmission Date: 20100525
  Serious: Yes (Hospitalization)
  Sender: FDA-Public Use
  Company Number: B0589535A

PATIENT
  Sex: Male
  Weight: 98.2 kg

DRUGS (2)
  1. DUTASTERIDE [Suspect]
     Dosage: .5MG PER DAY
     Route: 048
     Dates: start: 20080117
  2. DUTASTERIDE [Suspect]
     Indication: PROSTATE CANCER
     Route: 048
     Dates: start: 20040110, end: 20080117

REACTIONS (2)
  - HEMIANOPIA [None]
  - TRANSIENT ISCHAEMIC ATTACK [None]
